FAERS Safety Report 9713671 (Version 1)
Quarter: 2013Q4

REPORT INFORMATION
  Report Type: Spontaneous
  Country: DE (occurrence: DE)
  Receive Date: 20131126
  Receipt Date: 20131126
  Transmission Date: 20140711
  Serious: Yes (Hospitalization)
  Sender: FDA-Public Use
  Company Number: DE-ELI_LILLY_AND_COMPANY-DE201311006285

PATIENT
  Age: 71 Year
  Sex: Male
  Weight: 115 kg

DRUGS (2)
  1. ALIMTA [Suspect]
     Indication: PLEURAL MESOTHELIOMA
     Dosage: 1250 MG, UNKNOWN
     Route: 042
     Dates: start: 20131011, end: 20131011
  2. CISPLATIN [Concomitant]
     Indication: PLEURAL MESOTHELIOMA
     Dosage: 187 MG, UNKNOWN
     Route: 042
     Dates: start: 20131011, end: 20131011

REACTIONS (1)
  - Enteritis necroticans [Recovering/Resolving]
